FAERS Safety Report 4323468-8 (Version None)
Quarter: 2004Q1

REPORT INFORMATION
  Report Type: 
  Country: None (occurrence: None)
  Receive Date: 20040324
  Receipt Date: 20040324
  Transmission Date: 20041129
  Serious: Yes (Hospitalization)
  Sender: FDA-Public Use
  Company Number: None

PATIENT
  Age: 62 Year
  Sex: Male
  Weight: 117.9352 kg

DRUGS (9)
  1. AVELOX [Suspect]
     Indication: CHRONIC OBSTRUCTIVE AIRWAYS DISEASE EXACERBATED
     Dosage: 400 MG ONCE INTRAVENOUS
     Route: 042
     Dates: start: 20040307, end: 20040307
  2. AVELOX [Suspect]
     Indication: PNEUMONIA
     Dosage: 400 MG ONCE INTRAVENOUS
     Route: 042
     Dates: start: 20040307, end: 20040307
  3. STEROIDS [Concomitant]
  4. DUONEB [Concomitant]
  5. ATORVASTATIN [Concomitant]
  6. NPH INSULIN [Concomitant]
  7. METOPROLOL [Concomitant]
  8. SERTRALINE HCL [Concomitant]
  9. CLOPIDROGREL [Concomitant]

REACTIONS (3)
  - HYPERHIDROSIS [None]
  - PRURITUS [None]
  - URTICARIA [None]
